FAERS Safety Report 6941352-8 (Version None)
Quarter: 2010Q3

REPORT INFORMATION
  Report Type: 
  Country: None (occurrence: None)
  Receive Date: 20100825
  Receipt Date: 20100811
  Transmission Date: 20110219
  Serious: Yes (Hospitalization, Other)
  Sender: FDA-Public Use
  Company Number: PHHY2010AU48723

PATIENT
  Sex: Female
  Weight: 73 kg

DRUGS (16)
  1. ZOLEDRONIC [Suspect]
     Indication: OSTEOPOROTIC FRACTURE
     Dosage: 5 MG/100ML, UNK
     Dates: start: 20100615
  2. ALEPAM [Concomitant]
     Dosage: 0.5 TABLET IN MORNING
  3. ATACAND [Concomitant]
     Dosage: 1 TABLET DAILY
  4. ATROVENT [Concomitant]
     Dosage: 2 PUFFS 4 TIMES A DAY
  5. CARDIZEM CD [Concomitant]
     Dosage: 1 TABLET DAILY
  6. COUMADIN [Concomitant]
     Dosage: 1 TABLET DAILY
  7. DIGOXIN [Concomitant]
     Dosage: 2 TABLETS BEFORE BED
  8. MURELAX [Concomitant]
     Dosage: 1 TABLET BEFORE BED
  9. LEVOTHYROXINE SODIUM [Concomitant]
     Dosage: 1 TABLET DAILY
  10. PREDNISOLONE [Concomitant]
     Dosage: UNK
  11. PROGOUT [Concomitant]
     Dosage: 1 TAB DAILY
  12. SERC [Concomitant]
     Dosage: 1 TABLET IN MORNING
  13. SOMAC [Concomitant]
  14. STEMETIL [Concomitant]
     Dosage: UNK
  15. SYSTANE (PROPYLENE GLYCOL/MACROGOL) [Concomitant]
     Dosage: UNK
  16. VENTOLIN [Concomitant]
     Dosage: 2 PUFFS FOUR TIMES A DAY

REACTIONS (8)
  - ASTHENIA [None]
  - BRONCHOSPASM [None]
  - DRUG HYPERSENSITIVITY [None]
  - DYSPNOEA [None]
  - MYALGIA [None]
  - NAUSEA [None]
  - RASH [None]
  - RED BLOOD CELL SEDIMENTATION RATE INCREASED [None]
